FAERS Safety Report 8403029-1 (Version None)
Quarter: 2012Q2

REPORT INFORMATION
  Report Type: 
  Country: None (occurrence: None)
  Receive Date: 20120601
  Receipt Date: 20120524
  Transmission Date: 20120825
  Serious: Yes (Life-Threatening, Hospitalization)
  Sender: FDA-Public Use
  Company Number: US-ELI_LILLY_AND_COMPANY-US201204006147

PATIENT
  Sex: Male

DRUGS (2)
  1. XANAX [Concomitant]
     Indication: ANXIETY
     Dosage: UNK
  2. HUMALOG [Suspect]
     Indication: DIABETES MELLITUS
     Dosage: UNK, UNKNOWN
     Route: 058
     Dates: start: 20080101

REACTIONS (4)
  - DRUG INEFFECTIVE [None]
  - HAEMOGLOBIN ABNORMAL [None]
  - RENAL FAILURE [None]
  - DIABETIC KETOACIDOSIS [None]
